FAERS Safety Report 16851601 (Version 1)
Quarter: 2019Q3

REPORT INFORMATION
  Report Type: Spontaneous
  Country: CN (occurrence: CN)
  Receive Date: 20190925
  Receipt Date: 20190925
  Transmission Date: 20191005
  Serious: Yes (Other)
  Sender: FDA-Public Use
  Company Number: CN-FRESENIUS KABI-FK201910512

PATIENT
  Age: 69 Year
  Sex: Male
  Weight: 73 kg

DRUGS (4)
  1. GLUCOSE [Concomitant]
     Active Substance: DEXTROSE
     Indication: PRODUCT USED FOR UNKNOWN INDICATION
     Dosage: 250ML
     Route: 041
  2. RIBOFLAVIN SODIUM PHOSPHATE/POTASSIUM CHLORIDE [Concomitant]
     Indication: PRODUCT USED FOR UNKNOWN INDICATION
     Dosage: 7ML
     Route: 041
  3. SODIUM CHLORIDE. [Concomitant]
     Active Substance: SODIUM CHLORIDE
     Indication: PRODUCT USED FOR UNKNOWN INDICATION
     Dosage: 40ML
     Route: 041
  4. LIPOVENOES MCT (NOT SPECIFIED) [Suspect]
     Active Substance: EGG PHOSPHOLIPIDS\GLYCERIN\MEDIUM-CHAIN TRIGLYCERIDES\SOYBEAN OIL
     Indication: NUTRITIONAL SUPPLEMENTATION
     Dosage: 250ML,QD
     Route: 041
     Dates: start: 20190906, end: 20190906

REACTIONS (3)
  - Type IV hypersensitivity reaction [Recovered/Resolved]
  - Temperature intolerance [Recovered/Resolved]
  - Chills [Recovered/Resolved]

NARRATIVE: CASE EVENT DATE: 20190906
